FAERS Safety Report 4318101-5 (Version None)
Quarter: 2004Q1

REPORT INFORMATION
  Report Type: 
  Country: None (occurrence: None)
  Receive Date: 20040317
  Receipt Date: 20040311
  Transmission Date: 20041129
  Serious: Yes (Disabling)
  Sender: FDA-Public Use
  Company Number: WAES 0403USA01210

PATIENT
  Age: 61 Year
  Sex: Female

DRUGS (8)
  1. [THERAPY UNSPECIFIED] [Concomitant]
  2. NORVASC [Concomitant]
  3. ASPIRIN [Concomitant]
  4. COSOPT [Suspect]
     Indication: ANGLE CLOSURE GLAUCOMA
     Route: 047
     Dates: start: 20020101, end: 20040301
  5. PROZAC [Concomitant]
  6. XALATAN [Concomitant]
  7. ATIVAN [Concomitant]
  8. PRAVACHOL [Concomitant]

REACTIONS (8)
  - CARDIAC DISORDER [None]
  - CONJUNCTIVITIS [None]
  - EYE DISCHARGE [None]
  - EYE IRRITATION [None]
  - FOOT FRACTURE [None]
  - HEADACHE [None]
  - HYPERSENSITIVITY [None]
  - PHOTOSENSITIVITY REACTION [None]
